FAERS Safety Report 4711896-8 (Version None)
Quarter: 2005Q3

REPORT INFORMATION
  Report Type: 
  Country: None (occurrence: None)
  Receive Date: 20050708
  Receipt Date: 20050425
  Transmission Date: 20060218
  Serious: Yes (Other)
  Sender: FDA-Public Use
  Company Number: US-2005-006176

PATIENT
  Age: 61 Year
  Sex: Female

DRUGS (2)
  1. ULTRAVIST 300 [Suspect]
     Indication: COMPUTERISED TOMOGRAM
     Dosage: 1 DOSE, INTRAVENOUS
     Route: 042
     Dates: start: 20050321, end: 20050321
  2. ULTRAVIST 300 [Suspect]
     Indication: COMPUTERISED TOMOGRAM ABDOMEN
     Dosage: 1 DOSE, INTRAVENOUS
     Route: 042
     Dates: start: 20050321, end: 20050321

REACTIONS (6)
  - AGITATION [None]
  - ANXIETY [None]
  - LARYNGEAL OEDEMA [None]
  - LETHARGY [None]
  - SWELLING FACE [None]
  - WHEEZING [None]
